FAERS Safety Report 7630936-X (Version None)
Quarter: 2011Q3

REPORT INFORMATION
  Report Type: 
  Country: None (occurrence: None)
  Receive Date: 20110725
  Receipt Date: 20110715
  Transmission Date: 20111222
  Serious: Yes (Other)
  Sender: FDA-Public Use
  Company Number: DE-BIOGENIDEC-2011BI019752

PATIENT
  Age: 27 Year
  Sex: Female
  Weight: 78 kg

DRUGS (6)
  1. TYSABRI [Suspect]
     Indication: MULTIPLE SCLEROSIS
     Route: 042
     Dates: start: 20081030
  2. FALITHROM [Concomitant]
     Indication: ACTIVATED PROTEIN C RESISTANCE TEST
     Dates: start: 20000101
  3. CITALOPRAM HYDROBROMIDE [Concomitant]
     Indication: DEPRESSION
     Dates: start: 20080101
  4. OXYTOCIN [Concomitant]
     Route: 042
     Dates: start: 20110427, end: 20110427
  5. METHERGINE [Concomitant]
     Route: 042
     Dates: start: 20110427, end: 20110427
  6. PROSTAGLANDIN [Concomitant]
     Route: 061
     Dates: start: 20110427, end: 20110427

REACTIONS (2)
  - PREGNANCY [None]
  - ABORTION MISSED [None]
